FAERS Safety Report 18794501 (Version 1)
Quarter: 2021Q1

REPORT INFORMATION
  Report Type: Spontaneous
  Country: NL (occurrence: NL)
  Receive Date: 20210127
  Receipt Date: 20210127
  Transmission Date: 20210419
  Serious: Yes (Other)
  Sender: FDA-Public Use
  Company Number: NL-TEVA-2021-NL-1872509

PATIENT
  Sex: Male
  Weight: 75 kg

DRUGS (2)
  1. OFLOXACINE TABLET FO 400MG / BRAND NAME NOT SPECIFIED [Suspect]
     Active Substance: OFLOXACIN
     Indication: ORCHITIS
     Dosage: 800 MILLIGRAM DAILY; THERAPY END DATE :ASKED BUT UNKNOWN
     Route: 065
     Dates: start: 20201130
  2. LEVOFLOXACINE TABLET OMHULD 500MG / BRAND NAME NOT SPECIFIED [Concomitant]
     Dosage: 500 MG (MILLIGRAMS):THERAPY START DATE:ASKED BUT UNKNOWNTHERAPY END DATE :ASKED BUT UNKNOWN

REACTIONS (11)
  - Tinnitus [Not Recovered/Not Resolved]
  - Facial paralysis [Not Recovered/Not Resolved]
  - Hypnagogic hallucination [Not Recovered/Not Resolved]
  - Paraesthesia [Recovering/Resolving]
  - Rash [Not Recovered/Not Resolved]
  - Facial spasm [Not Recovered/Not Resolved]
  - Insomnia [Not Recovered/Not Resolved]
  - Depressed mood [Not Recovered/Not Resolved]
  - Back pain [Not Recovered/Not Resolved]
  - Abdominal pain [Recovering/Resolving]
  - Decreased appetite [Not Recovered/Not Resolved]
